FAERS Safety Report 17399019 (Version 3)
Quarter: 2020Q3

REPORT INFORMATION
  Report Type: Spontaneous
  Country: IT (occurrence: IT)
  Receive Date: 20200210
  Receipt Date: 20200928
  Transmission Date: 20201102
  Serious: Yes (Hospitalization, Disabling, Other)
  Sender: FDA-Public Use
  Company Number: IT-009507513-2002ITA003545

PATIENT
  Age: 37 Year
  Sex: Male
  Weight: 82 kg

DRUGS (1)
  1. PROPECIA [Suspect]
     Active Substance: FINASTERIDE
     Indication: ANDROGENETIC ALOPECIA
     Dosage: UNK
     Route: 048
     Dates: start: 200206, end: 201312

REACTIONS (13)
  - Tremor [Unknown]
  - Low density lipoprotein increased [Unknown]
  - Dysuria [Unknown]
  - Anaemia [Unknown]
  - Blood albumin increased [Unknown]
  - Blood uric acid increased [Unknown]
  - Extrasystoles [Unknown]
  - Polyuria [Unknown]
  - Blood cholesterol increased [Unknown]
  - Gastrointestinal disorder [Unknown]
  - Circadian rhythm sleep disorder [Unknown]
  - Post 5-alpha-reductase inhibitor syndrome [Not Recovered/Not Resolved]
  - Arrhythmia [Unknown]

NARRATIVE: CASE EVENT DATE: 201306
